FAERS Safety Report 5693478-7 (Version None)
Quarter: 2008Q2

REPORT INFORMATION
  Report Type: 
  Country: None (occurrence: None)
  Receive Date: 20080402
  Receipt Date: 20080402
  Transmission Date: 20081010
  Serious: Yes (Other)
  Sender: FDA-Public Use
  Company Number: None

PATIENT
  Sex: Female
  Weight: 63.5036 kg

DRUGS (1)
  1. SIMVASTATIN [Suspect]
     Indication: HYPERCHOLESTEROLAEMIA
     Dosage: 20MG. ONE DAILY PO
     Route: 048
     Dates: start: 20071115, end: 20071215

REACTIONS (6)
  - DYSPEPSIA [None]
  - EXERCISE TOLERANCE DECREASED [None]
  - HEADACHE [None]
  - MUSCULAR WEAKNESS [None]
  - PAIN [None]
  - SLEEP DISORDER [None]
